FAERS Safety Report 5563869-3 (Version None)
Quarter: 2007Q4

REPORT INFORMATION
  Report Type: 
  Country: None (occurrence: None)
  Receive Date: 20071217
  Receipt Date: 20071106
  Transmission Date: 20080405
  Serious: No
  Sender: FDA-Public Use
  Company Number: US-ASTRAZENECA-2007UW22305

PATIENT
  Age: 73 Year
  Sex: Female
  Weight: 76.2 kg

DRUGS (13)
  1. CRESTOR [Suspect]
     Indication: DYSLIPIDAEMIA
     Route: 048
     Dates: start: 20070101, end: 20070201
  2. CRESTOR [Suspect]
     Route: 048
     Dates: start: 20070201
  3. NASONEX [Concomitant]
  4. QVAR 40 [Concomitant]
  5. MYCARDIS HCT [Concomitant]
  6. GLIPIZIDE [Concomitant]
  7. METFORMIN HCL [Concomitant]
  8. LEVOXYL [Concomitant]
  9. ZELATEN OPTH [Concomitant]
  10. ASPIRIN [Concomitant]
  11. COMPLETIA DIABETIC MV (IRON FREE) [Concomitant]
  12. CALCIUM PLUS MAGNESIUM [Concomitant]
  13. ZINC [Concomitant]

REACTIONS (2)
  - COUGH [None]
  - TOTAL LUNG CAPACITY DECREASED [None]
